FAERS Safety Report 10560557 (Version 3)
Quarter: 2018Q4

REPORT INFORMATION
  Report Type: Report from Study
  Country: US (occurrence: US)
  Receive Date: 20141103
  Receipt Date: 20181120
  Transmission Date: 20190204
  Serious: Yes (Other)
  Sender: FDA-Public Use
  Company Number: US-SA-2014SA104541

PATIENT
  Age: 37 Year
  Sex: Female

DRUGS (6)
  1. ALGLUCOSIDASE ALFA [Suspect]
     Active Substance: ALGLUCOSIDASE ALFA
     Dosage: 1250 U; FREQUENCY: Q2
     Route: 041
  2. PREDNISONE. [Concomitant]
     Active Substance: PREDNISONE
     Indication: PREMEDICATION
     Dosage: 20 MG,UNK
     Route: 065
  3. NUVARING [Concomitant]
     Active Substance: ETHINYL ESTRADIOL\ETONOGESTREL
     Indication: CONTRACEPTION
     Dosage: UNK UNK,UNK
     Route: 065
     Dates: start: 2012
  4. MAGNESIUM [Concomitant]
     Active Substance: MAGNESIUM
     Dosage: 1000 MG,UNK
     Route: 065
     Dates: start: 2012
  5. CURCUMA LONGA [Concomitant]
     Active Substance: HERBALS\TURMERIC
     Dosage: 450 MG,UNK
     Route: 065
     Dates: start: 2012
  6. ALGLUCOSIDASE ALFA [Suspect]
     Active Substance: ALGLUCOSIDASE ALFA
     Indication: GLYCOGEN STORAGE DISEASE TYPE II
     Dosage: 1350 MG, QOW
     Route: 041
     Dates: start: 20140205, end: 20140821

REACTIONS (15)
  - General physical health deterioration [Not Recovered/Not Resolved]
  - Abdominal discomfort [Unknown]
  - Exposure during pregnancy [Unknown]
  - Dizziness [Not Recovered/Not Resolved]
  - Dyspnoea [Not Recovered/Not Resolved]
  - Palpitations [Unknown]
  - Abortion spontaneous [Recovered/Resolved]
  - Sluggishness [Unknown]
  - Rhabdomyolysis [Not Recovered/Not Resolved]
  - Fatigue [Not Recovered/Not Resolved]
  - Asthenia [Unknown]
  - Therapeutic response decreased [Unknown]
  - Blood creatine phosphokinase increased [Not Recovered/Not Resolved]
  - Carbohydrate intolerance [Not Recovered/Not Resolved]
  - Malaise [Unknown]

NARRATIVE: CASE EVENT DATE: 2014
